FAERS Safety Report 14110705 (Version 1)
Quarter: 2017Q4

REPORT INFORMATION
  Report Type: Spontaneous
  Country: US (occurrence: None)
  Receive Date: 20171019
  Receipt Date: 20171019
  Transmission Date: 20180321
  Serious: Yes (Death)
  Sender: FDA-Public Use
  Company Number: None

PATIENT
  Age: 74 Year
  Sex: Female
  Weight: 58.51 kg

DRUGS (12)
  1. AMLODIPINE [Concomitant]
     Active Substance: AMLODIPINE BESYLATE
  2. COZAAR [Concomitant]
     Active Substance: LOSARTAN POTASSIUM
  3. ASPIRIN. [Concomitant]
     Active Substance: ASPIRIN
  4. ADVAIR HFA [Concomitant]
     Active Substance: FLUTICASONE PROPIONATE\SALMETEROL XINAFOATE
  5. ULTRAM [Concomitant]
     Active Substance: TRAMADOL HYDROCHLORIDE
  6. ATIVAN [Concomitant]
     Active Substance: LORAZEPAM
  7. PRILOSEC [Concomitant]
     Active Substance: OMEPRAZOLE MAGNESIUM
  8. APIXABAN 5 MG [Suspect]
     Active Substance: APIXABAN
     Indication: DEEP VEIN THROMBOSIS
     Dosage: 10 MG BID X 7 DAYS THEN 5 MG BID ORAL
     Route: 048
     Dates: start: 20170929, end: 20171012
  9. FOLFIRINOX [Concomitant]
     Active Substance: FLUOROURACIL\IRINOTECAN\LEUCOVORIN\OXALIPLATIN
  10. LOZOL [Concomitant]
     Active Substance: INDAPAMIDE
  11. HEPARIN [Concomitant]
     Active Substance: HEPARIN SODIUM
  12. COMPAZINE [Concomitant]
     Active Substance: PROCHLORPERAZINE MALEATE

REACTIONS (7)
  - Discoloured vomit [None]
  - Bradycardia [None]
  - Pulmonary embolism [None]
  - Tachycardia [None]
  - Abdominal pain upper [None]
  - Pain [None]
  - Intracardiac thrombus [None]

NARRATIVE: CASE EVENT DATE: 20171018
